FAERS Safety Report 7547573-8 (Version None)
Quarter: 2011Q2

REPORT INFORMATION
  Report Type: 
  Country: None (occurrence: None)
  Receive Date: 20110614
  Receipt Date: 20110607
  Transmission Date: 20111010
  Serious: Yes (Hospitalization, Congenital Anomaly)
  Sender: FDA-Public Use
  Company Number: PHHO2011DE09334

PATIENT
  Sex: Female
  Weight: 92 kg

DRUGS (1)
  1. FTY [Suspect]
     Indication: MULTIPLE SCLEROSIS
     Dosage: 0.5 MG, QD
     Route: 048
     Dates: start: 20110315

REACTIONS (3)
  - DRUG INEFFECTIVE [None]
  - DISEASE PROGRESSION [None]
  - MULTIPLE SCLEROSIS RELAPSE [None]
